FAERS Safety Report 5702559-0 (Version None)
Quarter: 2008Q2

REPORT INFORMATION
  Report Type: 
  Country: None (occurrence: None)
  Receive Date: 20080411
  Receipt Date: 20070312
  Transmission Date: 20081010
  Serious: No
  Sender: FDA-Public Use
  Company Number: US-ASTRAZENECA-2007UW04737

PATIENT
  Age: 46 Year
  Sex: Male
  Weight: 83.5 kg

DRUGS (1)
  1. ATENOL [Suspect]
     Route: 048

REACTIONS (1)
  - PARAESTHESIA [None]
